FAERS Safety Report 16430724 (Version 2)
Quarter: 2020Q2

REPORT INFORMATION
  Report Type: Spontaneous
  Country: FR (occurrence: FR)
  Receive Date: 20190614
  Receipt Date: 20200610
  Transmission Date: 20200713
  Serious: Yes (Other)
  Sender: FDA-Public Use
  Company Number: PHHY2019FR134000

PATIENT
  Age: 38 Year
  Sex: Male
  Weight: 91 kg

DRUGS (7)
  1. NEORAL [Suspect]
     Active Substance: CYCLOSPORINE
     Indication: RENAL TRANSPLANT
     Dosage: 250 MG, QD (125 MG MATIN ET SOIR)
     Route: 048
     Dates: start: 2008, end: 2015
  2. RAMIPRIL. [Concomitant]
     Active Substance: RAMIPRIL
     Indication: HYPERTENSION
     Dosage: 5 MG, QD (5 MG LE MATIN)
     Route: 048
  3. TAHOR [Concomitant]
     Active Substance: ATORVASTATIN CALCIUM
     Indication: DYSLIPIDAEMIA
     Dosage: 10 MG, QD (10 MG LE SOIR)
     Route: 048
  4. PROGRAF [Suspect]
     Active Substance: TACROLIMUS
     Indication: RENAL TRANSPLANT
     Dosage: 6 MG, QD (3 MG MATIN ET SOIR)
     Route: 048
     Dates: start: 201501, end: 201502
  5. CELLCEPT [Suspect]
     Active Substance: MYCOPHENOLATE MOFETIL\MYCOPHENOLATE MOFETIL HYDROCHLORIDE
     Indication: RENAL TRANSPLANT
     Dosage: 1000 MG, QD (2 CP ? 8H ET 20H)
     Route: 048
     Dates: start: 2008, end: 20181205
  6. ADVAGRAF [Suspect]
     Active Substance: TACROLIMUS
     Indication: RENAL TRANSPLANT
     Dosage: 4 MG, QD (4 MG/JOUR ? 8H)
     Route: 048
     Dates: start: 201802
  7. ATENOLOL. [Concomitant]
     Active Substance: ATENOLOL
     Indication: HYPERTENSION
     Dosage: 50 MG, QD (50 MG LE MATIN)
     Route: 048

REACTIONS (1)
  - B-cell lymphoma [Not Recovered/Not Resolved]

NARRATIVE: CASE EVENT DATE: 20181213
